FAERS Safety Report 6199580-8 (Version None)
Quarter: 2009Q2

REPORT INFORMATION
  Report Type: 
  Country: None (occurrence: None)
  Receive Date: 20090522
  Receipt Date: 20090514
  Transmission Date: 20091009
  Serious: Yes (Hospitalization)
  Sender: FDA-Public Use
  Company Number: B0573973A

PATIENT
  Sex: Male

DRUGS (5)
  1. ARIXTRA [Suspect]
     Indication: PULMONARY EMBOLISM
     Dosage: 7.5MG PER DAY
     Route: 058
     Dates: start: 20090227, end: 20090305
  2. PREVISCAN [Suspect]
     Indication: PULMONARY EMBOLISM
     Dosage: 20MG PER DAY
     Route: 048
     Dates: start: 20090227, end: 20090306
  3. LOVENOX [Concomitant]
     Indication: DRUG USE FOR UNKNOWN INDICATION
     Route: 065
     Dates: start: 20090101
  4. INNOHEP [Concomitant]
     Indication: DRUG USE FOR UNKNOWN INDICATION
     Route: 065
     Dates: start: 20090223
  5. COAGULATION FACTORS [Concomitant]
     Indication: DRUG USE FOR UNKNOWN INDICATION
     Route: 065
     Dates: start: 20090301

REACTIONS (2)
  - HAEMATOMA [None]
  - SCIATIC NERVE PALSY [None]
